FAERS Safety Report 19716555 (Version 1)
Quarter: 2021Q3

REPORT INFORMATION
  Report Type: Spontaneous
  Country: US (occurrence: US)
  Receive Date: 20210819
  Receipt Date: 20210819
  Transmission Date: 20211014
  Serious: No
  Sender: FDA-Public Use
  Company Number: US-JNJFOC-20210827717

PATIENT
  Age: 63 Year
  Sex: Female
  Weight: 76.27 kg

DRUGS (5)
  1. BUPROPION. [Concomitant]
     Active Substance: BUPROPION
  2. SPRAVATO [Suspect]
     Active Substance: ESKETAMINE
     Indication: PRODUCT USED FOR UNKNOWN INDICATION
     Route: 045
     Dates: start: 20210811
  3. ONDANSETRON [Concomitant]
     Active Substance: ONDANSETRON
  4. ZOLPIDEM [Concomitant]
     Active Substance: ZOLPIDEM TARTRATE
     Indication: INSOMNIA
  5. LEVOTHYROXINE. [Concomitant]
     Active Substance: LEVOTHYROXINE

REACTIONS (2)
  - Burning sensation [Recovered/Resolved]
  - Lacrimation increased [Recovered/Resolved]
